FAERS Safety Report 16823003 (Version 2)
Quarter: 2019Q3

REPORT INFORMATION
  Report Type: Report from Study
  Country: IT (occurrence: IT)
  Receive Date: 20190918
  Receipt Date: 20190925
  Transmission Date: 20191005
  Serious: Yes (Hospitalization, Other)
  Sender: FDA-Public Use
  Company Number: IT-SA-2019SA258685

PATIENT
  Age: 32 Year
  Sex: Female

DRUGS (2)
  1. ZOLPIDEM TARTRATE. [Suspect]
     Active Substance: ZOLPIDEM TARTRATE
     Dosage: MEAN DAILY DOSE OF 10 MG
  2. LORAZEPAM. [Suspect]
     Active Substance: LORAZEPAM
     Dosage: MEAN DAILY DOSE OF 75 MG (DIAZEPAM-EQUIVALENTS DOSE: 755 MG)
     Route: 065

REACTIONS (4)
  - Hypertransaminasaemia [Unknown]
  - Drug abuse [Unknown]
  - Intentional overdose [Unknown]
  - Drug dependence [Unknown]
